FAERS Safety Report 6308447-3 (Version None)
Quarter: 2009Q3

REPORT INFORMATION
  Report Type: 
  Country: None (occurrence: None)
  Receive Date: 20090813
  Receipt Date: 20090804
  Transmission Date: 20100115
  Serious: Yes (Other)
  Sender: FDA-Public Use
  Company Number: PHHY2009CH31076

PATIENT
  Sex: Female

DRUGS (7)
  1. RASILEZ [Suspect]
     Indication: HYPERTENSION
     Dosage: 150 MG/DAY
     Route: 048
     Dates: start: 20080318, end: 20080407
  2. FLUDEX [Concomitant]
     Indication: HYPERTENSION
     Dosage: 1.5 MG/DAY
     Dates: start: 20050101, end: 20080406
  3. CALCIMAGON [Concomitant]
     Indication: PROPHYLAXIS
     Dosage: UNK
     Dates: start: 20050101
  4. MAGNESIUM [Concomitant]
     Indication: PROPHYLAXIS
     Dosage: UNK
     Dates: start: 20050101
  5. BELOC ZOK [Concomitant]
  6. PRAVASTATIN [Concomitant]
  7. STILNOX [Concomitant]

REACTIONS (4)
  - ANAPHYLACTIC REACTION [None]
  - ANGIOEDEMA [None]
  - DYSPHAGIA [None]
  - SWOLLEN TONGUE [None]
